FAERS Safety Report 23652044 (Version 1)
Quarter: 2024Q1

REPORT INFORMATION
  Report Type: Spontaneous
  Country: US (occurrence: US)
  Receive Date: 20240320
  Receipt Date: 20240320
  Transmission Date: 20240410
  Serious: Yes (Other)
  Sender: FDA-Public Use
  Company Number: US-PROCTER_AND_GAMBLE-GS24027804

PATIENT
  Sex: Male

DRUGS (3)
  1. OLD SPICE HIGH ENDURANCE PURE SPORT NOS [Suspect]
     Active Substance: ALUMINUM CHLOROHYDRATE OR ALUMINUM ZIRCONIUM TETRACHLOROHYDREX GLY OR ALUMINUM ZIRCONIUM TRICHLOROHY
     Dosage: 2 SWIPES, ONCE A DAY
     Route: 061
     Dates: start: 20240224, end: 20240225
  2. OLD SPICE RED COLLECTION SWAGGER [Suspect]
     Active Substance: ALUMINUM ZIRCONIUM TETRACHLOROHYDREX GLY
     Dosage: 2 SWIPES, ONCE A DAY
     Route: 061
     Dates: start: 20240224, end: 20240225
  3. OLD SPICE FRESHER COLLECTION FIJI INVISIBLE [Suspect]
     Active Substance: ALUMINUM ZIRCONIUM TRICHLOROHYDREX GLY
     Dosage: 2 SWIPES, ONCE A DAY
     Route: 061
     Dates: start: 20240224, end: 20240225

REACTIONS (2)
  - Chemical burn of skin [Not Recovered/Not Resolved]
  - Skin infection [Not Recovered/Not Resolved]

NARRATIVE: CASE EVENT DATE: 20240225
